FAERS Safety Report 4575389-3 (Version None)
Quarter: 2005Q1

REPORT INFORMATION
  Report Type: 
  Country: None (occurrence: None)
  Receive Date: 20050131
  Receipt Date: 20050131
  Transmission Date: 20050727
  Serious: No
  Sender: FDA-Public Use
  Company Number: None

PATIENT
  Sex: Male
  Weight: 38.5557 kg

DRUGS (3)
  1. ADDERALL 10 [Suspect]
     Indication: ATTENTION DEFICIT/HYPERACTIVITY DISORDER
     Dosage: 20 MG TID - QID
  2. ADDERALL 10 [Suspect]
     Indication: AUTISM SPECTRUM DISORDER
     Dosage: 20 MG TID - QID
  3. BUSPIRONE (GENERIC (30MG BID) (4 YRS) [Suspect]
     Indication: AFFECTIVE DISORDER
     Dosage: 10 MG TID - QID

REACTIONS (3)
  - AGITATION [None]
  - DRUG INEFFECTIVE [None]
  - PHARMACEUTICAL PRODUCT COMPLAINT [None]
